FAERS Safety Report 4851655-9 (Version None)
Quarter: 2005Q4

REPORT INFORMATION
  Report Type: 
  Country: None (occurrence: None)
  Receive Date: 20051212
  Receipt Date: 20051005
  Transmission Date: 20060501
  Serious: Yes (Death)
  Sender: FDA-Public Use
  Company Number: GB-MERCK-0512GBR00044

PATIENT
  Age: 82 Year
  Sex: Female

DRUGS (17)
  1. VIOXX [Suspect]
     Indication: BACK PAIN
     Route: 048
     Dates: start: 20010508, end: 20021221
  2. VIOXX [Suspect]
     Indication: OSTEOARTHRITIS
     Route: 048
     Dates: start: 20010508, end: 20021221
  3. CANDESARTAN [Concomitant]
     Route: 065
     Dates: start: 20000616
  4. LOPRAZOLAM [Concomitant]
     Route: 065
     Dates: start: 19980409
  5. FUROSEMIDE [Concomitant]
     Route: 065
     Dates: start: 20001023
  6. FERROUS GLUCONATE [Concomitant]
     Route: 065
     Dates: start: 20010917
  7. LANSOPRAZOLE [Concomitant]
     Route: 065
     Dates: start: 20010905
  8. CITALOPRAM [Concomitant]
     Indication: DEPRESSION
     Route: 065
     Dates: start: 20021003
  9. ACETAMINOPHEN [Concomitant]
     Route: 065
     Dates: start: 19970715
  10. RANITIDINE [Concomitant]
     Route: 065
  11. ALBUTEROL [Concomitant]
     Route: 055
     Dates: start: 19990929
  12. BECLOMETHASONE DIPROPIONATE [Concomitant]
     Route: 065
     Dates: start: 19991203
  13. ALUMINUM HYDROXIDE AND MAGNESIUM CARBONATE [Concomitant]
     Route: 065
     Dates: start: 19950704
  14. PHOLCODINE [Concomitant]
     Route: 065
     Dates: start: 20000229
  15. PIROXICAM [Concomitant]
     Route: 065
     Dates: start: 20020503
  16. [THERAPY UNSPECIFIED] [Concomitant]
     Route: 065
     Dates: start: 20021118
  17. NAFRONYL OXALATE [Concomitant]
     Route: 065
     Dates: start: 20021209

REACTIONS (10)
  - BALANCE DISORDER [None]
  - CEREBRAL HAEMORRHAGE [None]
  - DIZZINESS [None]
  - FALL [None]
  - HEAD INJURY [None]
  - HEADACHE [None]
  - NEUTROPENIA [None]
  - TACHYCARDIA [None]
  - THROMBOCYTHAEMIA [None]
  - VISUAL DISTURBANCE [None]
